FAERS Safety Report 11742385 (Version 2)
Quarter: 2015Q4

REPORT INFORMATION
  Report Type: Report from Study
  Country: US (occurrence: US)
  Receive Date: 20151116
  Receipt Date: 20151125
  Transmission Date: 20160304
  Serious: No
  Sender: FDA-Public Use
  Company Number: US-BIOGENIDEC-2015BI055093

PATIENT
  Sex: Female
  Weight: 97 kg

DRUGS (8)
  1. ADDERALL [Concomitant]
     Active Substance: AMPHETAMINE ASPARTATE\AMPHETAMINE SULFATE\DEXTROAMPHETAMINE SACCHARATE\DEXTROAMPHETAMINE SULFATE
  2. DEXTROAMPHETAMINE. [Concomitant]
     Active Substance: DEXTROAMPHETAMINE
     Route: 048
  3. TECFIDERA [Suspect]
     Active Substance: DIMETHYL FUMARATE
     Indication: MULTIPLE SCLEROSIS
     Route: 048
     Dates: start: 20140617, end: 20150403
  4. XANAX [Concomitant]
     Active Substance: ALPRAZOLAM
     Route: 048
  5. TECFIDERA [Suspect]
     Active Substance: DIMETHYL FUMARATE
     Indication: MULTIPLE SCLEROSIS
     Route: 048
  6. TECFIDERA [Suspect]
     Active Substance: DIMETHYL FUMARATE
     Indication: MULTIPLE SCLEROSIS
     Route: 048
  7. XANAX [Concomitant]
     Active Substance: ALPRAZOLAM
     Route: 048
  8. VALIUM [Concomitant]
     Active Substance: DIAZEPAM

REACTIONS (2)
  - Prescribed underdose [Unknown]
  - Pregnancy [Not Recovered/Not Resolved]
